FAERS Safety Report 15627414 (Version 4)
Quarter: 2021Q2

REPORT INFORMATION
  Report Type: Report from Study
  Country: AR (occurrence: AR)
  Receive Date: 20181116
  Receipt Date: 20210414
  Transmission Date: 20210716
  Serious: Yes (Hospitalization, Other)
  Sender: FDA-Public Use
  Company Number: PHHY2017AR044781

PATIENT
  Age: 54 Year
  Sex: Female

DRUGS (9)
  1. XOLAIR [Suspect]
     Active Substance: OMALIZUMAB
     Dosage: 300 MG, QMO
     Route: 065
     Dates: start: 2018
  2. LEVOTHYROXINE. [Concomitant]
     Active Substance: LEVOTHYROXINE
     Indication: PRODUCT USED FOR UNKNOWN INDICATION
     Dosage: UNK
     Route: 065
  3. BISOPROLOL [Concomitant]
     Active Substance: BISOPROLOL
     Indication: PRODUCT USED FOR UNKNOWN INDICATION
     Dosage: UNK
     Route: 065
  4. METFORMIN [Suspect]
     Active Substance: METFORMIN HYDROCHLORIDE
     Indication: PRODUCT USED FOR UNKNOWN INDICATION
     Dosage: UNK
     Route: 065
  5. XOLAIR [Suspect]
     Active Substance: OMALIZUMAB
     Dosage: 150 MG, (2 PER MONTH)
     Route: 065
     Dates: start: 201609
  6. XOLAIR [Suspect]
     Active Substance: OMALIZUMAB
     Dosage: 150 MG, (2 PER MONTH)
     Route: 065
     Dates: start: 20170215
  7. ASPIRIN. [Concomitant]
     Active Substance: ASPIRIN
     Indication: PRODUCT USED FOR UNKNOWN INDICATION
     Dosage: UNK
     Route: 065
  8. XOLAIR [Suspect]
     Active Substance: OMALIZUMAB
     Indication: CHRONIC SPONTANEOUS URTICARIA
     Dosage: 300 MG, QMO (2 DOSES OF 150 MG)
     Route: 058
     Dates: start: 20160301
  9. ROSUVASTATIN. [Concomitant]
     Active Substance: ROSUVASTATIN
     Indication: PRODUCT USED FOR UNKNOWN INDICATION
     Dosage: UNK
     Route: 065

REACTIONS (17)
  - Chronic spontaneous urticaria [Not Recovered/Not Resolved]
  - Drug ineffective [Recovering/Resolving]
  - Pain in extremity [Unknown]
  - Oedema peripheral [Unknown]
  - Urticaria [Recovering/Resolving]
  - Eye swelling [Not Recovered/Not Resolved]
  - Eyelid oedema [Unknown]
  - Pruritus [Unknown]
  - Infarction [Recovering/Resolving]
  - Mouth swelling [Not Recovered/Not Resolved]
  - Granuloma annulare [Not Recovered/Not Resolved]
  - Condition aggravated [Not Recovered/Not Resolved]
  - Drug intolerance [Not Recovered/Not Resolved]
  - Fatigue [Recovering/Resolving]
  - Pruritus [Recovered/Resolved]
  - Skin discolouration [Not Recovered/Not Resolved]
  - Deformity [Recovering/Resolving]

NARRATIVE: CASE EVENT DATE: 201803
